FAERS Safety Report 9133611 (Version 1)
Quarter: 2013Q1

REPORT INFORMATION
  Report Type: Report from Study
  Country: JP (occurrence: JP)
  Receive Date: 20130125
  Receipt Date: 20130125
  Transmission Date: 20140127
  Serious: Yes (Death, Hospitalization)
  Sender: FDA-Public Use
  Company Number: JP-B.I. PHARMACEUTICALS,INC./RIDGEFIELD-2013-BI-01656GD

PATIENT
  Age: 95 Year
  Sex: Female
  Weight: 49.3 kg

DRUGS (4)
  1. DABIGATRAN ETEXILATE [Suspect]
     Indication: ATRIAL FIBRILLATION
     Dosage: 220 MG
     Route: 048
     Dates: start: 20110818
  2. ALOSITOL [Concomitant]
     Dosage: 100 MG
     Route: 065
  3. TAKEPRON [Concomitant]
     Dosage: 15 MG
     Route: 065
  4. VALERIN [Concomitant]
     Dosage: 12 G
     Route: 065

REACTIONS (4)
  - Marasmus [Fatal]
  - Embolic stroke [Unknown]
  - Off label use [Unknown]
  - Drug effect incomplete [Unknown]
